FAERS Safety Report 20651491 (Version 3)
Quarter: 2022Q2

REPORT INFORMATION
  Report Type: Report from Study
  Country: US (occurrence: US)
  Receive Date: 20220330
  Receipt Date: 20220527
  Transmission Date: 20220721
  Serious: No
  Sender: FDA-Public Use
  Company Number: US-NOVARTISTESTPH-NVSC2022US071617

PATIENT
  Sex: Female
  Weight: 1.361 kg

DRUGS (1)
  1. ZOLGENSMA [Suspect]
     Active Substance: ONASEMNOGENE ABEPARVOVEC-XIOI
     Indication: Spinal muscular atrophy
     Dosage: UNK (ONE SINGLE DOSE)
     Route: 042
     Dates: start: 20220323, end: 20220323

REACTIONS (4)
  - Nausea [Unknown]
  - Troponin increased [Recovered/Resolved]
  - Weight gain poor [Unknown]
  - Vomiting [Unknown]
